FAERS Safety Report 4269977-1 (Version None)
Quarter: 2004Q1

REPORT INFORMATION
  Report Type: 
  Country: None (occurrence: None)
  Receive Date: 20040113
  Receipt Date: 20040113
  Transmission Date: 20041129
  Serious: Yes (Hospitalization)
  Sender: FDA-Public Use
  Company Number: None

PATIENT
  Age: 73 Year
  Sex: Male

DRUGS (13)
  1. DIGOXIN [Suspect]
     Indication: CARDIAC FAILURE CONGESTIVE
     Dosage: 0.125 MG QD
     Dates: start: 19980701
  2. FUROSEMIDE [Concomitant]
  3. AMITRIPTYING [Concomitant]
  4. FELODIPINE [Concomitant]
  5. FOSINOPRIL SODIUM [Concomitant]
  6. INSULIN [Concomitant]
  7. ISOSORBIDE [Concomitant]
  8. METFORMIN HCL [Concomitant]
  9. METOPROL [Concomitant]
  10. KCL TAB [Concomitant]
  11. ACIPHEX [Concomitant]
  12. SPIRONOLACTONE [Concomitant]
  13. METOLR..... [Concomitant]

REACTIONS (1)
  - NO ADVERSE DRUG EFFECT [None]
